FAERS Safety Report 7759524-1 (Version None)
Quarter: 2011Q3

REPORT INFORMATION
  Report Type: 
  Country: None (occurrence: None)
  Receive Date: 20110919
  Receipt Date: 20110919
  Transmission Date: 20111222
  Serious: Yes (Death, Hospitalization)
  Sender: FDA-Public Use
  Company Number: None

PATIENT
  Sex: Male
  Weight: 56 kg

DRUGS (1)
  1. AMIODARONE HCL [Suspect]
     Indication: ATRIAL FIBRILLATION
     Dosage: 400MG
     Route: 048

REACTIONS (3)
  - LUNG NEOPLASM MALIGNANT [None]
  - DYSPNOEA [None]
  - TOXICITY TO VARIOUS AGENTS [None]
